FAERS Safety Report 18775496 (Version 1)
Quarter: 2021Q1

REPORT INFORMATION
  Report Type: Spontaneous
  Country: US (occurrence: US)
  Receive Date: 20210122
  Receipt Date: 20210122
  Transmission Date: 20210419
  Serious: No
  Sender: FDA-Public Use
  Company Number: US-ACCORD-179136

PATIENT
  Sex: Female
  Weight: 94.8 kg

DRUGS (1)
  1. CLOZAPINE. [Suspect]
     Active Substance: CLOZAPINE
     Indication: SCHIZOPHRENIA
     Dates: start: 20200123

REACTIONS (3)
  - Bronchitis [Unknown]
  - Pyrexia [Unknown]
  - Respiratory symptom [Unknown]
